FAERS Safety Report 7435452-6 (Version None)
Quarter: 2011Q2

REPORT INFORMATION
  Report Type: 
  Country: None (occurrence: None)
  Receive Date: 20110425
  Receipt Date: 20110415
  Transmission Date: 20111010
  Serious: Yes (Life-Threatening)
  Sender: FDA-Public Use
  Company Number: US-MERCK-1104USA00348

PATIENT
  Sex: Male

DRUGS (3)
  1. DILTIAZEM HYDROCHLORIDE [Concomitant]
     Route: 065
  2. COZAAR [Suspect]
     Indication: HYPERTENSION
     Route: 048
     Dates: start: 20110316
  3. COZAAR [Suspect]
     Route: 048
     Dates: start: 20090101, end: 20110315

REACTIONS (3)
  - DRUG INEFFECTIVE [None]
  - BLOOD PRESSURE DIASTOLIC INCREASED [None]
  - BLOOD PRESSURE SYSTOLIC INCREASED [None]
